FAERS Safety Report 14791065 (Version 5)
Quarter: 2018Q4

REPORT INFORMATION
  Report Type: Spontaneous
  Country: DE (occurrence: DE)
  Receive Date: 20180423
  Receipt Date: 20181002
  Transmission Date: 20190204
  Serious: Yes (Death, Other)
  Sender: FDA-Public Use
  Company Number: DE-JNJFOC-20180421631

PATIENT
  Age: 80 Year
  Sex: Male
  Weight: 71 kg

DRUGS (11)
  1. DARATUMUMAB [Suspect]
     Active Substance: DARATUMUMAB
     Indication: PLASMA CELL MYELOMA
     Route: 042
     Dates: start: 20180226
  2. IBUPROFEN. [Suspect]
     Active Substance: IBUPROFEN
     Indication: PAIN
     Route: 048
  3. TORASEMID [Concomitant]
     Active Substance: TORSEMIDE
     Indication: CARDIAC FAILURE
     Route: 048
  4. ASPIRIN. [Concomitant]
     Active Substance: ASPIRIN
     Indication: CARDIAC FAILURE
     Dosage: INTAKE FOR YEARS
     Route: 048
  5. RAMIPRIL. [Concomitant]
     Active Substance: RAMIPRIL
     Indication: CARDIAC FAILURE
     Route: 048
  6. BORTEZOMIB. [Concomitant]
     Active Substance: BORTEZOMIB
     Indication: PLASMA CELL MYELOMA
     Route: 058
     Dates: start: 20180226
  7. ALLOPURINOL. [Concomitant]
     Active Substance: ALLOPURINOL
     Indication: HYPERURICAEMIA
     Dosage: INTAKE FOR YEARS
     Route: 048
  8. NOVAMINSULFON [Concomitant]
     Active Substance: METAMIZOLE
     Indication: PAIN
     Route: 048
  9. DEXAMETHASONE. [Suspect]
     Active Substance: DEXAMETHASONE
     Indication: PLASMA CELL MYELOMA
     Route: 048
     Dates: start: 20180118
  10. IBUPROFEN. [Suspect]
     Active Substance: IBUPROFEN
     Route: 048
  11. ACICLOVIR [Concomitant]
     Active Substance: ACYCLOVIR
     Indication: PLASMA CELL MYELOMA
     Route: 058

REACTIONS (1)
  - Sudden death [Fatal]

NARRATIVE: CASE EVENT DATE: 20180404
